FAERS Safety Report 10088793 (Version 1)
Quarter: 2014Q2

REPORT INFORMATION
  Report Type: Spontaneous
  Country: FR (occurrence: FR)
  Receive Date: 20140421
  Receipt Date: 20140421
  Transmission Date: 20141212
  Serious: Yes (Life-Threatening)
  Sender: FDA-Public Use
  Company Number: FR-BRISTOL-MYERS SQUIBB COMPANY-20636700

PATIENT
  Age: 70 Year
  Sex: Male

DRUGS (12)
  1. ERBITUX SOLN FOR INF [Suspect]
     Dosage: L IN 1 SINGLE INTAKE
     Route: 042
     Dates: start: 20131021, end: 20131021
  2. DOLIPRANE [Concomitant]
  3. INEXIUM [Concomitant]
  4. SIMVASTATIN [Concomitant]
  5. NITRENDIPINE [Concomitant]
  6. IRBESARTAN [Concomitant]
  7. HYDROCHLOROTHIAZIDE [Concomitant]
  8. TEGRETOL [Concomitant]
  9. TOPALGIC [Concomitant]
  10. INSULATARD [Concomitant]
  11. INSULIN ZINC SUSPENSION [Concomitant]
  12. UVEDOSE [Concomitant]

REACTIONS (5)
  - Encephalopathy [Recovered/Resolved]
  - Coma [Recovered/Resolved]
  - Epilepsy [Recovered/Resolved]
  - Hemiparesis [Recovered/Resolved]
  - Aphasia [Recovered/Resolved]
